FAERS Safety Report 8210628-9 (Version None)
Quarter: 2012Q1

REPORT INFORMATION
  Report Type: 
  Country: None (occurrence: None)
  Receive Date: 20120314
  Receipt Date: 20120307
  Transmission Date: 20120608
  Serious: Yes (Disabling)
  Sender: FDA-Public Use
  Company Number: US-MERCK-1203USA00956

PATIENT
  Age: 56 Year
  Sex: Female
  Weight: 68 kg

DRUGS (6)
  1. CELEBREX [Suspect]
     Indication: EHLERS-DANLOS SYNDROME
     Route: 065
  2. FIORICET [Concomitant]
     Indication: MIGRAINE
     Route: 065
  3. CRESTOR [Suspect]
     Indication: BLOOD CHOLESTEROL INCREASED
     Route: 065
  4. VITAMIN D (UNSPECIFIED) [Concomitant]
     Indication: OSTEOPENIA
     Route: 065
  5. NEXIUM [Concomitant]
     Indication: GASTROOESOPHAGEAL REFLUX DISEASE
     Route: 065
  6. ZETIA [Suspect]
     Indication: BLOOD CHOLESTEROL INCREASED
     Route: 048

REACTIONS (9)
  - ANXIETY [None]
  - ABASIA [None]
  - PAIN [None]
  - MIGRAINE [None]
  - ABDOMINAL DISCOMFORT [None]
  - INTERVERTEBRAL DISC PROTRUSION [None]
  - DEPRESSION [None]
  - BLOOD CHOLESTEROL INCREASED [None]
  - MYALGIA [None]
